FAERS Safety Report 19159554 (Version 1)
Quarter: 2021Q2

REPORT INFORMATION
  Report Type: Spontaneous
  Country: CA (occurrence: CA)
  Receive Date: 20210420
  Receipt Date: 20210420
  Transmission Date: 20210717
  Serious: Yes (Hospitalization, Other)
  Sender: FDA-Public Use
  Company Number: NVSC2021CA085200

PATIENT
  Age: 46 Year
  Sex: Female

DRUGS (9)
  1. MEPOLIZUMAB [Suspect]
     Active Substance: MEPOLIZUMAB
     Indication: ASTHMA
     Dosage: 10 MG
     Route: 042
  2. SEEBRI BREEZHALER [Suspect]
     Active Substance: GLYCOPYRROLATE
     Indication: ASTHMA
     Dosage: 1 DF, QD
     Route: 048
  3. ATROVENT [Suspect]
     Active Substance: IPRATROPIUM BROMIDE
     Indication: WHEEZING
     Dosage: 6 DF, QD
     Route: 065
  4. BUDESONIDE. [Suspect]
     Active Substance: BUDESONIDE
     Indication: ASTHMA
     Dosage: 2 DF, QD
     Route: 055
  5. PANTOPRAZOLE SODIUM. [Suspect]
     Active Substance: PANTOPRAZOLE SODIUM
     Indication: ASTHMA
     Dosage: 1 DF, QD
     Route: 048
  6. QUETIAPINE FUMARATE. [Suspect]
     Active Substance: QUETIAPINE FUMARATE
     Indication: PRODUCT USED FOR UNKNOWN INDICATION
     Dosage: 50 MG, QD
     Route: 065
  7. TRAZODONE [Suspect]
     Active Substance: TRAZODONE HYDROCHLORIDE
     Indication: PRODUCT USED FOR UNKNOWN INDICATION
     Dosage: 1 DF, QD
     Route: 065
  8. TOPIRAMATE. [Suspect]
     Active Substance: TOPIRAMATE
     Indication: PRODUCT USED FOR UNKNOWN INDICATION
     Dosage: 3 DF, QD
     Route: 065
  9. VENTOLINE [Suspect]
     Active Substance: ALBUTEROL
     Indication: WHEEZING
     Dosage: UNK
     Route: 065

REACTIONS (3)
  - Obstructive airways disorder [Unknown]
  - Pulmonary oedema [Unknown]
  - Asthma [Unknown]
